FAERS Safety Report 8432115-5 (Version None)
Quarter: 2012Q2

REPORT INFORMATION
  Report Type: 
  Country: None (occurrence: None)
  Receive Date: 20120613
  Receipt Date: 20120606
  Transmission Date: 20120825
  Serious: Yes (Hospitalization)
  Sender: FDA-Public Use
  Company Number: US-CELGENEUS-163-21880-12040866

PATIENT
  Sex: Female

DRUGS (35)
  1. LASIX [Concomitant]
     Route: 041
  2. ADVAIR DISKUS 100/50 [Concomitant]
     Dosage: 250-50 MCG (1 PUFF)
     Route: 055
  3. FLUOXETINE [Concomitant]
     Dosage: 40 MILLIGRAM
     Route: 048
  4. TRAZODONE HCL [Concomitant]
     Dosage: 50 MILLIGRAM
     Route: 048
  5. MAGNESIUM OXIDE [Concomitant]
     Dosage: 800 MILLIGRAM
     Route: 048
  6. OXYCODONE HCL [Concomitant]
     Indication: PAIN
     Dosage: 2 TABLET
     Route: 048
  7. SORBITOL 50PC INJ [Concomitant]
     Indication: CONSTIPATION
     Dosage: 30 MILLILITER
     Route: 048
  8. REVLIMID [Suspect]
     Route: 048
     Dates: start: 20120501
  9. ACETAMINOPHEN [Concomitant]
     Indication: PAIN
     Dosage: 2 TABLET
     Route: 048
  10. REQUIP [Concomitant]
     Dosage: .5 MILLIGRAM
     Route: 048
  11. MORPHINE [Concomitant]
     Dosage: 60 MILLIGRAM
     Route: 048
  12. DEXAMETHASONE [Concomitant]
     Dosage: 5.7143 MILLIGRAM
     Route: 048
  13. POTASSIUM CHLORIDE [Concomitant]
     Dosage: 20 MILLIEQUIVALENTS
     Route: 048
  14. MEXILETINE HYDROCHLORIDE [Concomitant]
     Route: 065
  15. VANCOMYCIN [Concomitant]
     Indication: STAPHYLOCOCCAL INFECTION
     Route: 041
  16. ACETAMINOPHEN [Concomitant]
  17. BUPROPION HCL [Concomitant]
     Dosage: 150 MILLIGRAM
     Route: 048
  18. LEVOTHROID [Concomitant]
     Dosage: 25 MICROGRAM
     Route: 048
  19. XOPENEX CONCENTRATE [Concomitant]
     Dosage: .5 MILLILITER
     Route: 055
  20. REVLIMID [Suspect]
     Indication: MULTIPLE MYELOMA
     Dosage: 25 MILLIGRAM
     Route: 048
     Dates: start: 20080201
  21. CHOLECALCIFEROL [Concomitant]
     Dosage: 2000 IU (INTERNATIONAL UNIT)
     Route: 048
  22. SENEXON [Concomitant]
     Dosage: 2 TABLET
  23. COLACE [Concomitant]
     Dosage: 200 MILLIGRAM
     Route: 048
  24. AMIODARONE HCL [Concomitant]
     Dosage: 800 MILLIGRAM
     Route: 048
  25. COUMADIN [Concomitant]
     Indication: ANTICOAGULANT THERAPY
  26. METOPROLOL TARTRATE [Concomitant]
     Dosage: 1
     Route: 048
  27. PANTOPRAZOLE [Concomitant]
     Dosage: 80 MILLIGRAM
  28. REVLIMID [Suspect]
     Dosage: 15 MILLIGRAM
     Route: 048
     Dates: start: 20081101
  29. LASIX [Concomitant]
  30. MULTIVITAMIN WITH MINERALS [Concomitant]
     Dosage: 1 TABLET
     Route: 048
  31. CYCLOBENZAPRINE [Concomitant]
     Dosage: 10 MILLIGRAM
     Route: 048
  32. LORAZEPAM [Concomitant]
     Indication: ANXIETY
     Dosage: .5 MILLIGRAM
     Route: 048
  33. SINGULAIR [Concomitant]
     Dosage: 10 MILLIGRAM
     Route: 048
  34. DULCOLAX [Concomitant]
     Indication: CONSTIPATION
     Dosage: 10 MILLIGRAM
     Route: 065
  35. SPIRONOLACTONE [Concomitant]
     Dosage: 25 MILLIGRAM
     Route: 048

REACTIONS (8)
  - RESPIRATORY FAILURE [None]
  - ARRHYTHMIA [None]
  - DYSPNOEA [None]
  - PLEURAL EFFUSION [None]
  - DEVICE RELATED INFECTION [None]
  - CARDIAC FAILURE CONGESTIVE [None]
  - TACHYCARDIA [None]
  - ATRIAL FLUTTER [None]
